FAERS Safety Report 7101689-9 (Version None)
Quarter: 2010Q4

REPORT INFORMATION
  Report Type: 
  Country: None (occurrence: None)
  Receive Date: 20101115
  Receipt Date: 20101108
  Transmission Date: 20110411
  Serious: Yes (Hospitalization, Other)
  Sender: FDA-Public Use
  Company Number: US-BAYER-200912712NA

PATIENT
  Age: 52 Year
  Sex: Female

DRUGS (12)
  1. BETASERON [Suspect]
     Indication: RELAPSING-REMITTING MULTIPLE SCLEROSIS
     Route: 058
     Dates: start: 20060220, end: 20061001
  2. BETASERON [Suspect]
     Route: 058
     Dates: start: 20030331, end: 20050721
  3. BETASERON [Suspect]
     Dosage: TOTAL DAILY DOSE: 6 MIU
     Route: 058
  4. BETASERON [Suspect]
     Dosage: TOTAL DAILY DOSE: 2 MIU
     Route: 058
     Dates: start: 20100917
  5. BETASERON [Suspect]
     Route: 058
     Dates: start: 20070127, end: 20080201
  6. BETASERON [Suspect]
     Route: 058
     Dates: start: 20080404, end: 20090530
  7. BETASERON [Suspect]
     Dosage: TOTAL DAILY DOSE: 4 MIU
     Route: 058
  8. TYLENOL [Concomitant]
  9. MORPHINE [Concomitant]
     Route: 048
  10. ANTIDEPRESSANTS [Concomitant]
  11. ANTISEIZURE MEDICATIONS [Concomitant]
  12. UNKNOWN DRUG [Concomitant]
     Indication: BLOOD PRESSURE ABNORMAL

REACTIONS (11)
  - ASTHENIA [None]
  - CONVULSION [None]
  - DIZZINESS [None]
  - FALL [None]
  - FATIGUE [None]
  - HALLUCINATION, AUDITORY [None]
  - HEAD INJURY [None]
  - HYPERTENSION [None]
  - HYPOTENSION [None]
  - TREMOR [None]
  - URINARY TRACT INFECTION [None]
